FAERS Safety Report 10170715 (Version 1)
Quarter: 2014Q2

REPORT INFORMATION
  Report Type: Spontaneous
  Country: US (occurrence: US)
  Receive Date: 20140514
  Receipt Date: 20140514
  Transmission Date: 20141212
  Serious: No
  Sender: FDA-Public Use
  Company Number: US-009507513-1404USA015246

PATIENT
  Sex: Female

DRUGS (2)
  1. CLARITIN [Suspect]
     Indication: PRODUCT USED FOR UNKNOWN INDICATION
     Dosage: A WHOLE PILL
     Route: 048
  2. CLARITIN [Suspect]
     Dosage: HALF A PILL
     Route: 048

REACTIONS (6)
  - Flatulence [Unknown]
  - Nervous system disorder [Unknown]
  - Abdominal pain upper [Unknown]
  - Fatigue [Unknown]
  - Off label use [Unknown]
  - Underdose [Unknown]
